FAERS Safety Report 7402293-5 (Version None)
Quarter: 2011Q2

REPORT INFORMATION
  Report Type: 
  Country: None (occurrence: None)
  Receive Date: 20110408
  Receipt Date: 20110331
  Transmission Date: 20111010
  Serious: Yes (Other)
  Sender: FDA-Public Use
  Company Number: US-RB-023506-11

PATIENT
  Sex: Female

DRUGS (3)
  1. EVISTA [Concomitant]
  2. MUCINEX DM [Suspect]
     Route: 048
  3. MUCINEX DM [Suspect]
     Indication: BRONCHITIS
     Route: 048

REACTIONS (2)
  - LOSS OF CONSCIOUSNESS [None]
  - DIZZINESS [None]
